FAERS Safety Report 23863559 (Version 1)
Quarter: 2024Q2

REPORT INFORMATION
  Report Type: Spontaneous
  Country: US (occurrence: US)
  Receive Date: 20240516
  Receipt Date: 20240516
  Transmission Date: 20240716
  Serious: Yes (Other)
  Sender: FDA-Public Use
  Company Number: US-SANDOZ-SDZ2024US048800

PATIENT
  Age: 9 Month
  Sex: Male

DRUGS (2)
  1. VANCOMYCIN [Suspect]
     Active Substance: VANCOMYCIN
     Indication: Mediastinitis
     Dosage: SINGLE RENALLY ADJUSTED DOSE
     Route: 042
  2. CEFEPIME [Concomitant]
     Active Substance: CEFEPIME HYDROCHLORIDE
     Indication: Mediastinitis
     Dosage: UNK
     Route: 042

REACTIONS (2)
  - Toxicity to various agents [Recovering/Resolving]
  - Blood creatinine increased [Recovering/Resolving]
